FAERS Safety Report 20132012 (Version 2)
Quarter: 2021Q4

REPORT INFORMATION
  Report Type: Report from Study
  Country: CA (occurrence: CA)
  Receive Date: 20211130
  Receipt Date: 20211217
  Transmission Date: 20220303
  Serious: Yes (Death, Hospitalization)
  Sender: FDA-Public Use
  Company Number: CA-OTSUKA-2021_024322

PATIENT
  Sex: Male

DRUGS (2)
  1. CEDAZURIDINE\DECITABINE [Suspect]
     Active Substance: CEDAZURIDINE\DECITABINE
     Indication: Myelodysplastic syndrome
     Dosage: UNK
     Route: 048
     Dates: start: 20201216
  2. CEDAZURIDINE\DECITABINE [Suspect]
     Active Substance: CEDAZURIDINE\DECITABINE
     Dosage: 1 DF, QD (3 DAYS)
     Route: 048
     Dates: start: 20210803

REACTIONS (9)
  - Death [Fatal]
  - Pulmonary oedema [Unknown]
  - Platelet count increased [Unknown]
  - Cyanosis [Unknown]
  - White blood cell count increased [Unknown]
  - Asthenia [Unknown]
  - Fatigue [Unknown]
  - Red blood cell count decreased [Unknown]
  - Product use issue [Unknown]
